FAERS Safety Report 15884816 (Version 2)
Quarter: 2019Q2

REPORT INFORMATION
  Report Type: Spontaneous
  Country: US (occurrence: US)
  Receive Date: 20190129
  Receipt Date: 20190411
  Transmission Date: 20190711
  Serious: No
  Sender: FDA-Public Use
  Company Number: US-BAUSCH-BL-2019-001504

PATIENT
  Age: 66 Year
  Sex: Female
  Weight: 122.58 kg

DRUGS (6)
  1. HYDRALAZINE [Concomitant]
     Active Substance: HYDRALAZINE HYDROCHLORIDE
     Indication: HYPERTENSION
  2. NIFEDIPINE. [Suspect]
     Active Substance: NIFEDIPINE
     Indication: HYPERTENSION
     Dosage: EXTENDED RELEASE TABLETS (STOPPED PROBABLY ON 01/FEB/2019)
     Route: 048
     Dates: start: 20181214
  3. TOPROL XL [Concomitant]
     Active Substance: METOPROLOL SUCCINATE
     Indication: HYPERTENSION
  4. LIDODERM [Suspect]
     Active Substance: LIDOCAINE
     Dosage: PATCHES
     Route: 061
     Dates: end: 20181226
  5. LISINOPRIL. [Concomitant]
     Active Substance: LISINOPRIL
     Indication: HYPERTENSION
  6. LIDODERM [Suspect]
     Active Substance: LIDOCAINE
     Indication: PAIN
     Dosage: PATCHES
     Route: 061
     Dates: start: 2013, end: 20181224

REACTIONS (5)
  - Skin warm [Recovered/Resolved]
  - Rash pruritic [Recovered/Resolved]
  - Erythema [Recovered/Resolved]
  - Drug interaction [Recovered/Resolved]
  - Petechiae [Recovered/Resolved]

NARRATIVE: CASE EVENT DATE: 20181214
